FAERS Safety Report 5802036-2 (Version None)
Quarter: 2008Q3

REPORT INFORMATION
  Report Type: 
  Country: None (occurrence: None)
  Receive Date: 20080707
  Receipt Date: 20080625
  Transmission Date: 20090109
  Serious: Yes (Hospitalization, Other)
  Sender: FDA-Public Use
  Company Number: JP-PFIZER INC-2008011971

PATIENT
  Sex: Male
  Weight: 54.5 kg

DRUGS (11)
  1. ZITHROMAX [Suspect]
     Route: 048
     Dates: start: 20071124, end: 20071221
  2. COLDRIN [Suspect]
     Route: 048
     Dates: start: 20071124, end: 20071128
  3. MUCODYNE [Suspect]
     Route: 048
     Dates: start: 20071124, end: 20071128
  4. MUCODYNE [Suspect]
     Dates: start: 20071219, end: 20071223
  5. ONON [Suspect]
     Route: 048
     Dates: start: 20071124, end: 20071128
  6. ZADITEN [Suspect]
     Route: 048
     Dates: start: 20071219, end: 20071223
  7. ASVERIN [Suspect]
     Route: 048
     Dates: start: 20071219, end: 20071223
  8. FOSMICIN [Suspect]
     Indication: INFECTION
     Dates: start: 20080111, end: 20080118
  9. MINOMYCIN [Concomitant]
  10. MEIACT [Concomitant]
  11. MEPTIN [Concomitant]
     Route: 048
     Dates: start: 20071124, end: 20071128

REACTIONS (3)
  - RASH [None]
  - THROMBOCYTOPENIA [None]
  - THROMBOCYTOPENIC PURPURA [None]
